FAERS Safety Report 25323979 (Version 1)
Quarter: 2025Q2

REPORT INFORMATION
  Report Type: Spontaneous
  Country: US (occurrence: None)
  Receive Date: 20250515
  Receipt Date: 20250515
  Transmission Date: 20250717
  Serious: Yes (Disabling, Other)
  Sender: FDA-CTU
  Company Number: None

PATIENT
  Age: 42 Year
  Sex: Male
  Weight: 97.3 kg

DRUGS (10)
  1. LACOSAMIDE [Suspect]
     Active Substance: LACOSAMIDE
     Indication: Seizure
     Dosage: 1 TABLET(S) TWICE A DAY ORAL
     Route: 048
     Dates: start: 20250429, end: 20250430
  2. Pantoprasole [Concomitant]
  3. HUMALOG [Concomitant]
     Active Substance: INSULIN LISPRO
  4. Elliquis [Concomitant]
  5. EPOGEN [Concomitant]
     Active Substance: ERYTHROPOIETIN
  6. Clacium Acetate [Concomitant]
  7. VELTASSA [Concomitant]
     Active Substance: PATIROMER
  8. TRAZODONE [Concomitant]
     Active Substance: TRAZODONE HYDROCHLORIDE
  9. Doxasoxin [Concomitant]
  10. Mebivolol [Concomitant]

REACTIONS (2)
  - Dizziness [None]
  - Balance disorder [None]

NARRATIVE: CASE EVENT DATE: 20250430
